FAERS Safety Report 21027737 (Version 2)
Quarter: 2022Q3

REPORT INFORMATION
  Report Type: Spontaneous
  Country: JP (occurrence: JP)
  Receive Date: 20220630
  Receipt Date: 20220706
  Transmission Date: 20221027
  Serious: Yes (Hospitalization, Other)
  Sender: FDA-Public Use
  Company Number: JP-BRISTOL-MYERS SQUIBB COMPANY-BMS-2020-016694

PATIENT
  Age: 65 Year
  Sex: Female

DRUGS (2)
  1. OPDIVO [Suspect]
     Active Substance: NIVOLUMAB
     Indication: Malignant melanoma
     Dosage: 80 MILLIGRAM, Q3WK, (2 COURSES)
     Route: 041
     Dates: start: 20191202, end: 20191223
  2. YERVOY [Suspect]
     Active Substance: IPILIMUMAB
     Indication: Malignant melanoma
     Dosage: 3 MILLIGRAM/KILOGRAM, Q3WK, (2 COURSES)
     Route: 041
     Dates: start: 20191202, end: 20191223

REACTIONS (2)
  - Drug eruption [Recovered/Resolved]
  - Hepatic function abnormal [Unknown]

NARRATIVE: CASE EVENT DATE: 20191208
